FAERS Safety Report 8798293 (Version 2)
Quarter: 2015Q3

REPORT INFORMATION
  Report Type: Report from Study
  Country: US (occurrence: US)
  Receive Date: 20120920
  Receipt Date: 20150706
  Transmission Date: 20151125
  Serious: Yes (Death)
  Sender: FDA-Public Use
  Company Number: US-ROCHE-1102843

PATIENT
  Age: 47 Year
  Sex: Female
  Weight: 87 kg

DRUGS (14)
  1. DECADRON [Concomitant]
     Active Substance: DEXAMETHASONE
     Route: 042
  2. ARANESP [Concomitant]
     Active Substance: DARBEPOETIN ALFA
     Route: 065
  3. AVASTIN [Suspect]
     Active Substance: BEVACIZUMAB
     Indication: OVARIAN CANCER
     Route: 042
     Dates: start: 20060123
  4. AVASTIN [Suspect]
     Active Substance: BEVACIZUMAB
     Indication: MALIGNANT NEOPLASM OF UTERINE ADNEXA
     Route: 042
  5. TAXOTERE [Concomitant]
     Active Substance: DOCETAXEL
     Dosage: 147MG IN 250CC NS
     Route: 042
  6. DECADRON [Concomitant]
     Active Substance: DEXAMETHASONE
     Route: 042
  7. ALOXI [Concomitant]
     Active Substance: PALONOSETRON HYDROCHLORIDE
     Route: 042
  8. DEXAMETHASONE. [Concomitant]
     Active Substance: DEXAMETHASONE
     Route: 042
  9. BENADRYL [Concomitant]
     Active Substance: DIPHENHYDRAMINE HYDROCHLORIDE
     Route: 042
  10. ZANTAC [Concomitant]
     Active Substance: RANITIDINE HYDROCHLORIDE
     Route: 048
  11. PROCRIT [Concomitant]
     Active Substance: ERYTHROPOIETIN
     Route: 065
  12. AVASTIN [Suspect]
     Active Substance: BEVACIZUMAB
     Route: 042
  13. NEULASTA [Concomitant]
     Active Substance: PEGFILGRASTIM
     Route: 065
  14. TAXOTERE [Concomitant]
     Active Substance: DOCETAXEL
     Route: 042

REACTIONS (2)
  - Off label use [Unknown]
  - Death [Fatal]

NARRATIVE: CASE EVENT DATE: 20070325
